FAERS Safety Report 7458475-X (Version None)
Quarter: 2011Q2

REPORT INFORMATION
  Report Type: 
  Country: None (occurrence: None)
  Receive Date: 20110504
  Receipt Date: 20110426
  Transmission Date: 20111010
  Serious: Yes (Hospitalization)
  Sender: FDA-Public Use
  Company Number: R0008675B

PATIENT
  Sex: Female

DRUGS (6)
  1. DOCETAXEL [Suspect]
     Indication: CHEMOTHERAPY
     Dosage: 135MCG PER DAY
     Route: 042
     Dates: start: 20100104
  2. DECADRON [Suspect]
     Indication: THERAPEUTIC PROCEDURE
     Dosage: 500MCG PER DAY
     Route: 048
     Dates: start: 20100103, end: 20100107
  3. CYCLOPHOSPHAMIDE [Suspect]
     Indication: CHEMOTHERAPY
     Dosage: 1110MCG PER DAY
     Route: 042
     Dates: start: 20100104
  4. ONDANSETRON [Suspect]
     Indication: THERAPEUTIC PROCEDURE
     Dosage: 8MCG PER DAY
     Route: 048
     Dates: start: 20100104, end: 20100105
  5. AREPANRIX H1N1 [Concomitant]
     Route: 030
     Dates: start: 20091122, end: 20091122
  6. FLU TRIVALENT SPLIT + AS03/2 [Suspect]
     Route: 030
     Dates: start: 20090930, end: 20090930

REACTIONS (1)
  - FEBRILE NEUTROPENIA [None]
